FAERS Safety Report 6523693-1 (Version None)
Quarter: 2009Q4

REPORT INFORMATION
  Report Type: 
  Country: None (occurrence: None)
  Receive Date: 20091231
  Receipt Date: 20091222
  Transmission Date: 20100525
  Serious: Yes (Other)
  Sender: FDA-Public Use
  Company Number: PHHY2009JP58891

PATIENT
  Age: 67 Year
  Sex: Female

DRUGS (4)
  1. CYCLOSPORINE [Suspect]
     Indication: STILL'S DISEASE ADULT ONSET
  2. PREDNISOLONE [Concomitant]
     Indication: STILL'S DISEASE ADULT ONSET
     Dosage: 30 MG, UNK
     Dates: start: 20081016
  3. PREDNISOLONE [Concomitant]
     Dosage: 50 MG, UNK
  4. METHYLPREDNISOLONE [Concomitant]
     Indication: STILL'S DISEASE ADULT ONSET

REACTIONS (2)
  - CYTOMEGALOVIRUS INFECTION [None]
  - HISTIOCYTOSIS HAEMATOPHAGIC [None]
